FAERS Safety Report 20420292 (Version 2)
Quarter: 2022Q1

REPORT INFORMATION
  Report Type: Spontaneous
  Country: PT (occurrence: PT)
  Receive Date: 20220203
  Receipt Date: 20220207
  Transmission Date: 20220423
  Serious: Yes (Other)
  Sender: FDA-Public Use
  Company Number: PT-BAYER-2022A014801

PATIENT
  Age: 44 Year
  Sex: Female

DRUGS (3)
  1. INTERFERON BETA-1B [Suspect]
     Active Substance: INTERFERON BETA-1B
     Indication: Relapsing multiple sclerosis
  2. INTERFERON BETA-1A [Suspect]
     Active Substance: INTERFERON BETA-1A
  3. DIMETHYL FUMARATE [Suspect]
     Active Substance: DIMETHYL FUMARATE

REACTIONS (3)
  - Spinal cord injury [None]
  - Psychotic disorder [None]
  - Drug ineffective [None]
